FAERS Safety Report 16777697 (Version 1)
Quarter: 2019Q3

REPORT INFORMATION
  Report Type: Spontaneous
  Country: US (occurrence: US)
  Receive Date: 20190905
  Receipt Date: 20190905
  Transmission Date: 20191005
  Serious: No
  Sender: FDA-Public Use
  Company Number: US-IGSA-SR10009035

PATIENT
  Age: 46 Year
  Sex: Male

DRUGS (7)
  1. VITAMIN D                          /00107901/ [Concomitant]
     Active Substance: ERGOCALCIFEROL
     Dosage: 5000 IU, UNK
  2. GAMUNEX-C [Suspect]
     Active Substance: HUMAN IMMUNOGLOBULIN G
     Indication: CHRONIC INFLAMMATORY DEMYELINATING POLYRADICULONEUROPATHY
     Dosage: 55 G, QD
     Dates: start: 20190718
  3. BACLOFEN. [Concomitant]
     Active Substance: BACLOFEN
  4. DIAZEPAM. [Concomitant]
     Active Substance: DIAZEPAM
  5. CO-EN Q [Concomitant]
  6. CAPTOPRIL. [Concomitant]
     Active Substance: CAPTOPRIL
  7. PROAIR HFA [Concomitant]
     Active Substance: ALBUTEROL SULFATE

REACTIONS (3)
  - Pruritus [Unknown]
  - Paraesthesia oral [Unknown]
  - Lip swelling [Unknown]

NARRATIVE: CASE EVENT DATE: 20190718
